FAERS Safety Report 8071688-1 (Version None)
Quarter: 2012Q1

REPORT INFORMATION
  Report Type: 
  Country: None (occurrence: None)
  Receive Date: 20120125
  Receipt Date: 20120119
  Transmission Date: 20120608
  Serious: Yes (Other)
  Sender: FDA-Public Use
  Company Number: US-ASTRAZENECA-2011SE28092

PATIENT
  Age: 47 Year
  Sex: Male
  Weight: 90.7 kg

DRUGS (9)
  1. SEROQUEL [Suspect]
     Route: 048
  2. INHALERS [Concomitant]
  3. HIGH CHOLESTEROL MED [Concomitant]
     Indication: BLOOD CHOLESTEROL INCREASED
  4. SEROQUEL [Suspect]
     Indication: DEPRESSION
     Route: 048
     Dates: start: 20110301
  5. HIGH BLOOD PRESSURE MED [Concomitant]
     Indication: HYPERTENSION
  6. SEROQUEL [Suspect]
     Route: 048
  7. SEROQUEL [Suspect]
     Indication: BIPOLAR DISORDER
     Route: 048
     Dates: start: 20110301
  8. SEROQUEL [Suspect]
     Route: 048
  9. SEROQUEL [Suspect]
     Route: 048

REACTIONS (10)
  - HOMICIDAL IDEATION [None]
  - VOMITING [None]
  - INSOMNIA [None]
  - ANGER [None]
  - AGITATION [None]
  - TREMOR [None]
  - MALAISE [None]
  - STRESS [None]
  - DRUG DOSE OMISSION [None]
  - DRUG PRESCRIBING ERROR [None]
